FAERS Safety Report 5008370-0 (Version None)
Quarter: 2006Q2

REPORT INFORMATION
  Report Type: 
  Country: None (occurrence: None)
  Receive Date: 20060523
  Receipt Date: 20060516
  Transmission Date: 20061013
  Serious: Yes (Hospitalization)
  Sender: FDA-Public Use
  Company Number: ES-BRISTOL-MYERS SQUIBB COMPANY-13380308

PATIENT
  Age: 38 Year
  Sex: Male

DRUGS (2)
  1. SUSTIVA [Suspect]
     Route: 048
     Dates: start: 20050314, end: 20050330
  2. TRUVADA [Concomitant]
     Dosage: TENOFOVIR 200 MG + EMTRICITABINE 245 MG TABLETS
     Route: 048
     Dates: start: 20050314

REACTIONS (2)
  - PARAPLEGIA [None]
  - RASH ERYTHEMATOUS [None]
